FAERS Safety Report 9392637 (Version 2)
Quarter: 2013Q3

REPORT INFORMATION
  Report Type: Spontaneous
  Country: DE (occurrence: DE)
  Receive Date: 20130710
  Receipt Date: 20130810
  Transmission Date: 20140515
  Serious: Yes (Other)
  Sender: FDA-Public Use
  Company Number: DE-ROCHE-1245967

PATIENT
  Sex: Female
  Weight: 82 kg

DRUGS (6)
  1. ROACTEMRA [Suspect]
     Indication: RHEUMATOID ARTHRITIS
     Route: 042
     Dates: start: 20130215, end: 20130517
  2. PREDNISONE [Concomitant]
     Indication: RHEUMATOID ARTHRITIS
     Route: 048
     Dates: start: 2005
  3. ASS [Concomitant]
     Route: 048
  4. VIGANTOLETTEN [Concomitant]
     Indication: OSTEOPOROSIS
     Route: 048
  5. BISOPROLOL [Concomitant]
     Indication: HYPERTENSION
     Route: 048
  6. OMEPRAZOL [Concomitant]
     Route: 048

REACTIONS (2)
  - Rash [Recovered/Resolved]
  - Pruritus [Recovered/Resolved]
